FAERS Safety Report 13429413 (Version 3)
Quarter: 2017Q3

REPORT INFORMATION
  Report Type: Report from Study
  Country: None (occurrence: US)
  Receive Date: 20170411
  Receipt Date: 20170713
  Transmission Date: 20171127
  Serious: Yes (Hospitalization)
  Sender: FDA-Public Use
  Company Number: US-ABBVIE-17K-163-1932147-00

PATIENT
  Sex: Female
  Weight: 66.28 kg

DRUGS (1)
  1. HUMIRA [Suspect]
     Active Substance: ADALIMUMAB
     Indication: CROHN^S DISEASE
     Route: 058
     Dates: start: 201511

REACTIONS (1)
  - Intra-abdominal fluid collection [Recovered/Resolved]

NARRATIVE: CASE EVENT DATE: 2017
